FAERS Safety Report 5400828-5 (Version None)
Quarter: 2007Q3

REPORT INFORMATION
  Report Type: 
  Country: None (occurrence: None)
  Receive Date: 20070730
  Receipt Date: 20070723
  Transmission Date: 20080115
  Serious: Yes (Hospitalization, Other)
  Sender: FDA-Public Use
  Company Number: US-PFIZER INC-2007060607

PATIENT
  Sex: Male
  Weight: 93.181 kg

DRUGS (5)
  1. CAVERJECT [Suspect]
     Indication: ERECTILE DYSFUNCTION
     Dates: start: 20070601, end: 20070723
  2. ZETIA [Concomitant]
  3. ATENOLOL [Concomitant]
  4. PAROXETINE [Concomitant]
  5. MEGESTROL ACETATE [Concomitant]

REACTIONS (2)
  - ERECTION INCREASED [None]
  - STENT PLACEMENT [None]
